FAERS Safety Report 16014205 (Version 1)
Quarter: 2019Q1

REPORT INFORMATION
  Report Type: Spontaneous
  Country: US (occurrence: US)
  Receive Date: 20190227
  Receipt Date: 20190227
  Transmission Date: 20190418
  Serious: Yes (Other)
  Sender: FDA-Public Use
  Company Number: US-ASTRAZENECA-2019SE27891

PATIENT

DRUGS (2)
  1. TAMOXIFEN [Suspect]
     Active Substance: TAMOXIFEN
     Route: 048
  2. FASLODEX [Suspect]
     Active Substance: FULVESTRANT
     Route: 030

REACTIONS (1)
  - Tumour marker increased [Unknown]
